FAERS Safety Report 4351934-8 (Version None)
Quarter: 2004Q2

REPORT INFORMATION
  Report Type: 
  Country: None (occurrence: None)
  Receive Date: 20040429
  Receipt Date: 20040119
  Transmission Date: 20050107
  Serious: No
  Sender: FDA-Public Use
  Company Number: 2004-112444-NL

PATIENT
  Age: 52 Year
  Sex: Female
  Weight: 45 kg

DRUGS (5)
  1. NUVARING [Suspect]
     Indication: MENORRHAGIA
     Dosage: DF DAILY VAGINAL
     Route: 067
     Dates: start: 20030930
  2. NUVARING [Suspect]
     Indication: UTERINE LEIOMYOMA
     Dosage: DF DAILY VAGINAL
     Route: 067
     Dates: start: 20030930
  3. VITAMINS C [Concomitant]
  4. SYNTHROID [Concomitant]
  5. HEMATINIC PLUS [Concomitant]

REACTIONS (2)
  - METRORRHAGIA [None]
  - WEIGHT INCREASED [None]
